FAERS Safety Report 17678094 (Version 2)
Quarter: 2020Q2

REPORT INFORMATION
  Report Type: Spontaneous
  Country: CA (occurrence: CA)
  Receive Date: 20200417
  Receipt Date: 20200513
  Transmission Date: 20200714
  Serious: Yes (Other)
  Sender: FDA-Public Use
  Company Number: CA-ROCHE-2583552

PATIENT
  Age: 48 Year
  Sex: Female

DRUGS (5)
  1. TECTA [Concomitant]
     Active Substance: PANTOPRAZOLE MAGNESIUM
     Indication: ABDOMINAL PAIN UPPER
     Dosage: 1 DF, PRN
     Route: 048
  2. RUPALL [Concomitant]
     Active Substance: RUPATADINE FUMARATE
     Indication: URTICARIA
     Dosage: 1 DF, PRN
     Route: 048
     Dates: start: 20190923
  3. XOLAIR [Suspect]
     Active Substance: OMALIZUMAB
     Indication: CHRONIC SPONTANEOUS URTICARIA
     Dosage: 300 MG EVERY 4 WEEKS
     Route: 058
     Dates: start: 20200106
  4. XOLAIR [Suspect]
     Active Substance: OMALIZUMAB
     Dosage: 300 MG EVERY 4 WEEKS
     Route: 058
     Dates: start: 20200408
  5. REACTINE [CETIRIZINE HYDROCHLORIDE] [Concomitant]
     Active Substance: CETIRIZINE HYDROCHLORIDE
     Indication: PRODUCT USED FOR UNKNOWN INDICATION
     Dosage: UNK
     Route: 065

REACTIONS (6)
  - Syncope [Unknown]
  - Fall [Unknown]
  - Facial bones fracture [Unknown]
  - Pruritus [Unknown]
  - Dizziness [Unknown]
  - Renal disorder [Unknown]

NARRATIVE: CASE EVENT DATE: 202004
